FAERS Safety Report 15566480 (Version 1)
Quarter: 2018Q4

REPORT INFORMATION
  Report Type: Spontaneous
  Country: CH (occurrence: CH)
  Receive Date: 20181030
  Receipt Date: 20181030
  Transmission Date: 20190205
  Serious: Yes (Other)
  Sender: FDA-Public Use
  Company Number: CH-TEVA-2018-CH-970225

PATIENT
  Age: 64 Year

DRUGS (3)
  1. CARBOPLATIN. [Suspect]
     Active Substance: CARBOPLATIN
     Route: 065
  2. FLUOROURACIL. [Suspect]
     Active Substance: FLUOROURACIL
     Route: 065
  3. ERBITUX [Suspect]
     Active Substance: CETUXIMAB
     Route: 065

REACTIONS (2)
  - Oropharyngeal cancer [Unknown]
  - Metastases to liver [Unknown]

NARRATIVE: CASE EVENT DATE: 2018
